FAERS Safety Report 8988148 (Version 1)
Quarter: 2012Q4

REPORT INFORMATION
  Report Type: 
  Country: FR (occurrence: FR)
  Receive Date: 20121227
  Receipt Date: 20121227
  Transmission Date: 20130627
  Serious: Yes (Hospitalization)
  Sender: FDA-Public Use
  Company Number: FR-BRISTOL-MYERS SQUIBB COMPANY-17230632

PATIENT
  Age: 75 Year
  Sex: Female

DRUGS (9)
  1. HYDREA CAPS 500 MG [Suspect]
     Indication: POLYCYTHAEMIA VERA
     Route: 048
     Dates: end: 20120813
  2. VANCOMYCIN [Suspect]
     Indication: INFECTION
     Dosage: On 05Aug12, reduced to 1gm/d
     Dates: start: 20120729, end: 20120811
  3. DEROXAT [Suspect]
     Route: 048
     Dates: end: 20120813
  4. LINEZOLID [Suspect]
     Dates: start: 20120811
  5. ATACAND [Concomitant]
  6. COTAREG [Concomitant]
  7. IMOVANE [Concomitant]
  8. OXYCONTIN [Concomitant]
  9. PARIET [Concomitant]

REACTIONS (1)
  - Renal failure acute [Recovered/Resolved]
